FAERS Safety Report 18460370 (Version 1)
Quarter: 2020Q4

REPORT INFORMATION
  Report Type: Spontaneous
  Country: US (occurrence: US)
  Receive Date: 20201104
  Receipt Date: 20201104
  Transmission Date: 20210114
  Serious: No
  Sender: FDA-Public Use
  Company Number: US-SA-2020SA308254

PATIENT

DRUGS (7)
  1. CALCIUM [Concomitant]
     Active Substance: CALCIUM
  2. FLOMAX [Concomitant]
     Active Substance: TAMSULOSIN HYDROCHLORIDE
  3. IMIPRAMINE HCL [Concomitant]
     Active Substance: IMIPRAMINE HYDROCHLORIDE
  4. AUBAGIO [Suspect]
     Active Substance: TERIFLUNOMIDE
     Indication: MULTIPLE SCLEROSIS
     Dosage: 14 MG, QD
     Route: 048
  5. IRON [Concomitant]
     Active Substance: IRON
  6. VITAMIN D [VITAMIN D NOS] [Concomitant]
     Active Substance: VITAMIN D NOS
  7. VESICARE [Concomitant]
     Active Substance: SOLIFENACIN SUCCINATE

REACTIONS (2)
  - Diarrhoea [Recovered/Resolved]
  - Nausea [Recovered/Resolved]
